FAERS Safety Report 7110459-7 (Version None)
Quarter: 2010Q4

REPORT INFORMATION
  Report Type: 
  Country: None (occurrence: None)
  Receive Date: 20101116
  Receipt Date: 20101116
  Transmission Date: 20110411
  Serious: No
  Sender: FDA-Public Use
  Company Number: None

PATIENT
  Age: 43 Year
  Sex: Male
  Weight: 160.9 kg

DRUGS (12)
  1. PHENYTOIN [Suspect]
     Indication: EPILEPSY
     Dosage: 400 MG Q HS ORAL
     Route: 048
     Dates: start: 20100506, end: 20100527
  2. PHENYTOIN [Suspect]
  3. PHENYTOIN [Suspect]
  4. SEROQUEL [Interacting]
  5. CRESTOR [Concomitant]
  6. DEPAKOTE [Concomitant]
  7. HALDOL [Concomitant]
  8. KDUR [Concomitant]
  9. LASIX [Concomitant]
  10. KLONAPIN [Concomitant]
  11. PROTONIX [Concomitant]
  12. CLOZARIL [Concomitant]

REACTIONS (2)
  - ANTICONVULSANT DRUG LEVEL DECREASED [None]
  - PRODUCT QUALITY ISSUE [None]
